FAERS Safety Report 24072414 (Version 1)
Quarter: 2024Q3

REPORT INFORMATION
  Report Type: Spontaneous
  Country: CN (occurrence: CN)
  Receive Date: 20240710
  Receipt Date: 20240710
  Transmission Date: 20241016
  Serious: Yes (Other)
  Sender: BAUSCH AND LOMB
  Company Number: CN-Bausch and Lomb-2024BNL029555

PATIENT
  Age: 65 Year
  Sex: Female

DRUGS (11)
  1. PREDNISOLONE [Suspect]
     Active Substance: PREDNISOLONE
     Indication: Dry eye
     Route: 065
     Dates: start: 2020
  2. DEXAMETHASONE [Suspect]
     Active Substance: DEXAMETHASONE
     Indication: Ulcerative keratitis
     Route: 065
     Dates: start: 20210226
  3. TOBRAMYCIN [Suspect]
     Active Substance: TOBRAMYCIN\TOBRAMYCIN SULFATE
     Indication: Ulcerative keratitis
     Route: 065
     Dates: start: 20210226
  4. DICLOFENAC SODIUM [Suspect]
     Active Substance: DICLOFENAC\DICLOFENAC SODIUM
     Indication: Ulcerative keratitis
     Route: 065
     Dates: start: 20210226
  5. SODIUM HYALURONATE [Suspect]
     Active Substance: HYALURONATE SODIUM
     Indication: Dry eye
     Route: 065
     Dates: start: 2020
  6. LEVOFLOXACIN [Suspect]
     Active Substance: LEVOFLOXACIN
     Indication: Ulcerative keratitis
     Route: 065
  7. SINTILIMAB [Concomitant]
     Active Substance: SINTILIMAB
     Indication: Metastases to central nervous system
     Dosage: FOUR COURSES
     Route: 048
     Dates: start: 202007, end: 2020
  8. CATEQUENTINIB [Concomitant]
     Active Substance: CATEQUENTINIB
     Indication: Metastases to central nervous system
     Dosage: FOUR COURSES
     Route: 048
     Dates: start: 202007, end: 2020
  9. FIBROBLAST GROWTH FACTOR 2 (BOVINE) [Concomitant]
     Active Substance: FIBROBLAST GROWTH FACTOR 2 (BOVINE)
     Indication: Ulcerative keratitis
     Dates: start: 2020
  10. VINCRISTINE [Concomitant]
     Active Substance: VINCRISTINE
     Indication: Immunosuppressant drug therapy
     Dates: start: 2020
  11. METHYLPREDNISOLONE [Concomitant]
     Active Substance: METHYLPREDNISOLONE
     Indication: Immunosuppressant drug therapy
     Dates: start: 2020

REACTIONS (1)
  - Therapy non-responder [Unknown]

NARRATIVE: CASE EVENT DATE: 20200101
